FAERS Safety Report 9739094 (Version 2)
Quarter: 2013Q4

REPORT INFORMATION
  Report Type: Spontaneous
  Country: IT (occurrence: IT)
  Receive Date: 20131209
  Receipt Date: 20131218
  Transmission Date: 20140711
  Serious: Yes (Death, Hospitalization, Other)
  Sender: FDA-Public Use
  Company Number: IT-BIOMARINAP-IT-2013-102039

PATIENT
  Age: 21 Year
  Sex: Male
  Weight: 32 kg

DRUGS (5)
  1. ALDURAZYME [Suspect]
     Indication: MUCOPOLYSACCHARIDOSIS I
     Dosage: 100 IU/KG, QW
     Route: 042
     Dates: start: 20040308, end: 20131118
  2. CAPTOPRIL [Concomitant]
     Indication: CARDIAC VALVE DISEASE
  3. LASIX                              /00032601/ [Concomitant]
     Indication: CARDIAC VALVE DISEASE
  4. TOPAMAX [Concomitant]
     Indication: EPILEPSY
  5. LUMINALE                           /00023201/ [Concomitant]
     Indication: EPILEPSY

REACTIONS (4)
  - Disease progression [Fatal]
  - Cardio-respiratory arrest [Unknown]
  - Respiratory failure [Unknown]
  - Respiratory tract infection [Recovered/Resolved]
